FAERS Safety Report 4405092-1 (Version None)
Quarter: 2004Q3

REPORT INFORMATION
  Report Type: 
  Country: None (occurrence: None)
  Receive Date: 20040716
  Receipt Date: 20040712
  Transmission Date: 20050211
  Serious: No
  Sender: FDA-Public Use
  Company Number: 2004UW14357

PATIENT
  Age: 61 Year
  Sex: Male

DRUGS (1)
  1. DIPRIVAN [Suspect]
     Indication: SEDATION

REACTIONS (3)
  - DELAYED RECOVERY FROM ANAESTHESIA [None]
  - LABILE BLOOD PRESSURE [None]
  - POST PROCEDURAL HAEMORRHAGE [None]
